FAERS Safety Report 24371420 (Version 1)
Quarter: 2024Q3

REPORT INFORMATION
  Report Type: Spontaneous
  Country: FR (occurrence: FR)
  Receive Date: 20240927
  Receipt Date: 20240927
  Transmission Date: 20241016
  Serious: Yes (Hospitalization, Disabling, Other)
  Sender: PFIZER
  Company Number: FR-ROCHE-10000076093

PATIENT
  Age: 80 Year
  Sex: Male

DRUGS (11)
  1. BEVACIZUMAB [Suspect]
     Active Substance: BEVACIZUMAB
     Indication: Colorectal cancer
     Dosage: 520 MG
  2. BEVACIZUMAB [Suspect]
     Active Substance: BEVACIZUMAB
     Dosage: 520 MG, DATE OF MOST RECENT DOSE  PRIOR TO SAE (CYCLE 23)
     Dates: start: 20230926
  3. OXALIPLATIN [Suspect]
     Active Substance: OXALIPLATIN
     Indication: Colorectal cancer
     Dosage: 174 MG
     Dates: start: 20220621
  4. OXALIPLATIN [Suspect]
     Active Substance: OXALIPLATIN
     Dosage: 174 MG MOST RECENT DOSE PRIOR TO SAE (CYCLE 23)
     Dates: start: 20230926
  5. ATEZOLIZUMAB [Suspect]
     Active Substance: ATEZOLIZUMAB
     Indication: Colorectal cancer
     Dosage: 1200 MG
     Dates: start: 20220621
  6. ATEZOLIZUMAB [Suspect]
     Active Substance: ATEZOLIZUMAB
     Dosage: 1200 MG MOST RECENT DOSE PRIOR TO SAE (CYCLE 23)
     Dates: start: 20230926
  7. CAPECITABINE [Suspect]
     Active Substance: CAPECITABINE
     Indication: Colorectal cancer
     Dosage: 49000 MG
     Dates: start: 20220621
  8. CAPECITABINE [Suspect]
     Active Substance: CAPECITABINE
     Dosage: 49000 MG MOST RECENT DOSE PRIOR TO SAE (CYCLE 23)
     Dates: start: 20230926
  9. BROMAZEPAM [Concomitant]
     Active Substance: BROMAZEPAM
     Dosage: 3 MG
  10. ENALAPRIL MALEATE\LERCANIDIPINE HYDROCHLORIDE [Concomitant]
     Active Substance: ENALAPRIL MALEATE\LERCANIDIPINE HYDROCHLORIDE
     Dosage: 20 MG
  11. LIPTRUZET [Concomitant]
     Active Substance: ATORVASTATIN CALCIUM\EZETIMIBE
     Dosage: 40 MG

REACTIONS (1)
  - Drug-induced liver injury [Not Recovered/Not Resolved]

NARRATIVE: CASE EVENT DATE: 20240405
